FAERS Safety Report 9855316 (Version 1)
Quarter: 2014Q1

REPORT INFORMATION
  Report Type: Spontaneous
  Country: US (occurrence: US)
  Receive Date: 20140130
  Receipt Date: 20140130
  Transmission Date: 20141002
  Serious: No
  Sender: FDA-Public Use
  Company Number: US-009507513-1401USA013850

PATIENT
  Sex: 0

DRUGS (5)
  1. ZIOPTAN [Suspect]
     Indication: GLAUCOMA
     Route: 047
  2. LUMIGAN [Suspect]
     Indication: GLAUCOMA
  3. ZADITOR [Concomitant]
     Indication: DRY EYE
  4. ZADITOR [Concomitant]
     Indication: OCULAR HYPERAEMIA
  5. ZADITOR [Concomitant]
     Indication: EYE ALLERGY

REACTIONS (1)
  - Eye irritation [Unknown]
